FAERS Safety Report 5226367-2 (Version None)
Quarter: 2007Q1

REPORT INFORMATION
  Report Type: 
  Country: None (occurrence: None)
  Receive Date: 20061201
  Receipt Date: 20061024
  Transmission Date: 20070707
  Serious: No
  Sender: FDA-Public Use
  Company Number: US200610004424

PATIENT
  Age: 57 Year
  Sex: Female

DRUGS (4)
  1. CYMBALTA [Suspect]
     Indication: ANXIETY
     Dosage: 60 MG
  2. LISINOPRIL [Concomitant]
  3. GLIMEPIRIDE [Concomitant]
  4. TEMAZEPAM [Concomitant]

REACTIONS (3)
  - HALLUCINATION, VISUAL [None]
  - PAIN [None]
  - SUICIDAL IDEATION [None]
